FAERS Safety Report 8483396-3 (Version None)
Quarter: 2012Q3

REPORT INFORMATION
  Report Type: 
  Country: None (occurrence: None)
  Receive Date: 20120702
  Receipt Date: 20120626
  Transmission Date: 20120928
  Serious: Yes (Other)
  Sender: FDA-Public Use
  Company Number: US-JNJFOC-20120613979

PATIENT

DRUGS (2)
  1. REMICADE [Suspect]
     Dosage: 4 VIALS
     Route: 042
     Dates: start: 20090601
  2. REMICADE [Suspect]
     Indication: PRODUCT USED FOR UNKNOWN INDICATION
     Dosage: 3MG/KG OR 5 MG/KG
     Route: 042
     Dates: start: 20111024

REACTIONS (2)
  - GASTROINTESTINAL PERFORATION [None]
  - INFUSION SITE REACTION [None]
